FAERS Safety Report 9719482 (Version 2)
Quarter: 2013Q4

REPORT INFORMATION
  Report Type: Spontaneous
  Country: BR (occurrence: BR)
  Receive Date: 20131128
  Receipt Date: 20131128
  Transmission Date: 20140711
  Serious: Yes (Hospitalization)
  Sender: FDA-Public Use
  Company Number: BR-BIOGENIDEC-2010BI044390

PATIENT
  Age: 30 Year
  Sex: Female

DRUGS (3)
  1. AVONEX [Suspect]
     Indication: MULTIPLE SCLEROSIS
     Route: 030
     Dates: start: 20080929, end: 200905
  2. AVONEX [Suspect]
     Indication: MULTIPLE SCLEROSIS
     Route: 030
     Dates: start: 201008
  3. AVONEX [Suspect]
     Indication: MULTIPLE SCLEROSIS
     Route: 030
     Dates: start: 20121020

REACTIONS (8)
  - Incisional hernia [Recovered/Resolved]
  - Appendicectomy [Unknown]
  - Incision site abscess [Unknown]
  - Nosocomial infection [Unknown]
  - Pain [Recovered/Resolved]
  - Influenza like illness [Unknown]
  - Back pain [Recovered/Resolved]
  - Sensation of heaviness [Recovered/Resolved]
